FAERS Safety Report 5670319-5 (Version None)
Quarter: 2008Q1

REPORT INFORMATION
  Report Type: 
  Country: None (occurrence: None)
  Receive Date: 20080314
  Receipt Date: 20080314
  Transmission Date: 20080703
  Serious: No
  Sender: FDA-Public Use
  Company Number: None

PATIENT
  Age: 59 Year
  Sex: Male
  Weight: 57.6 kg

DRUGS (2)
  1. TICLOPIDINE HCL [Suspect]
     Indication: CEREBROVASCULAR ACCIDENT PROPHYLAXIS
     Dosage: 250MG BID PO
     Route: 048
     Dates: start: 20080222, end: 20080229
  2. DILTIAZEM [Suspect]
     Indication: HYPERTENSION
     Dosage: 120MG EVERY DAY PO
     Route: 048
     Dates: start: 20070208

REACTIONS (3)
  - BLOOD ALKALINE PHOSPHATASE INCREASED [None]
  - DRUG INTOLERANCE [None]
  - HEPATIC ENZYME INCREASED [None]
